FAERS Safety Report 11605830 (Version 1)
Quarter: 2015Q4

REPORT INFORMATION
  Report Type: Report from Study
  Country: US (occurrence: US)
  Receive Date: 20151007
  Receipt Date: 20151007
  Transmission Date: 20160304
  Serious: Yes (Hospitalization, Other)
  Sender: FDA-Public Use
  Company Number: US-ELI_LILLY_AND_COMPANY-US201509009917

PATIENT
  Age: 66 Year
  Sex: Male
  Weight: 66.67 kg

DRUGS (13)
  1. FENTANYL. [Concomitant]
     Active Substance: FENTANYL
     Dosage: 100 UG, EVERY 3 DAYS
  2. ONDANSETRON [Concomitant]
     Active Substance: ONDANSETRON
     Dosage: UNK
     Dates: start: 20140728
  3. DAILY VITE PLUS IRON [Concomitant]
     Dosage: UNK
     Dates: start: 20140617
  4. GEMCITABINE HYDROCHLORIDE. [Suspect]
     Active Substance: GEMCITABINE HYDROCHLORIDE
     Indication: PANCREATIC CARCINOMA
     Dosage: 1000 MG/M2, WEEKLY FOR 3 WEEKS IN 4 WEEK CYCLE
     Route: 042
     Dates: start: 20140728
  5. PACLITAXEL, ABI-007 PROTEIN BOUND [Suspect]
     Active Substance: PACLITAXEL
     Indication: PANCREATIC CARCINOMA
     Dosage: 125 MG/M2, EVERY WEEK FOR 3 WEEKS IN 4 WEEK CYCLE
     Route: 042
     Dates: start: 20140728
  6. FENTANYL. [Concomitant]
     Active Substance: FENTANYL
     Dosage: 75 UG, EVERY 3 DAYS
     Dates: start: 20140707
  7. SIMVASTATIN. [Concomitant]
     Active Substance: SIMVASTATIN
     Dosage: UNK
     Dates: start: 20140616
  8. PLAVIX [Concomitant]
     Active Substance: CLOPIDOGREL BISULFATE
     Dosage: UNK
     Dates: start: 20140617, end: 20150103
  9. LINZESS [Concomitant]
     Active Substance: LINACLOTIDE
     Dosage: UNK
     Dates: start: 20140610
  10. ASPIRIN                            /00002701/ [Concomitant]
     Active Substance: ASPIRIN
     Dosage: UNK
     Dates: start: 20140617
  11. HYDROMORPHONE [Concomitant]
     Active Substance: HYDROMORPHONE
     Dosage: UNK
     Dates: start: 20140731
  12. GLUCOPHAGE [Concomitant]
     Active Substance: METFORMIN HYDROCHLORIDE
     Dosage: UNK
     Dates: start: 20140720
  13. METOPROLOL [Concomitant]
     Active Substance: METOPROLOL
     Dosage: UNK
     Dates: start: 20140617

REACTIONS (10)
  - Neutropenic sepsis [Recovered/Resolved]
  - Constipation [Unknown]
  - Coagulopathy [Recovered/Resolved]
  - Dyspnoea [Unknown]
  - Vitamin K deficiency [Recovered/Resolved]
  - Vomiting [Unknown]
  - Nausea [Unknown]
  - Anaemia [Recovered/Resolved]
  - Haemorrhoids [Unknown]
  - Productive cough [Unknown]

NARRATIVE: CASE EVENT DATE: 20140729
